FAERS Safety Report 4547170-2 (Version None)
Quarter: 2005Q1

REPORT INFORMATION
  Report Type: 
  Country: None (occurrence: None)
  Receive Date: 20050107
  Receipt Date: 20041230
  Transmission Date: 20050727
  Serious: Yes (Hospitalization)
  Sender: FDA-Public Use
  Company Number: US-ABBOTT-05P-163-0285142-00

PATIENT
  Sex: Female
  Weight: 59.02 kg

DRUGS (2)
  1. HUMIRA [Suspect]
     Indication: RHEUMATOID ARTHRITIS
     Route: 058
     Dates: start: 20030201, end: 20030701
  2. HUMIRA [Suspect]
     Route: 058
     Dates: start: 20030801, end: 20040801

REACTIONS (2)
  - DIVERTICULITIS [None]
  - INJECTION SITE IRRITATION [None]
